FAERS Safety Report 5125433-X (Version None)
Quarter: 2006Q3

REPORT INFORMATION
  Report Type: 
  Country: None (occurrence: None)
  Receive Date: 20060822
  Receipt Date: 20060717
  Transmission Date: 20061208
  Serious: No
  Sender: FDA-Public Use
  Company Number: PHEH2006US09112

PATIENT
  Age: 68 Year
  Sex: Female

DRUGS (2)
  1. ENABLEX [Suspect]
     Indication: HYPERTONIC BLADDER
     Dates: start: 20060712, end: 20060715
  2. ZOLOFT [Concomitant]

REACTIONS (4)
  - ERYTHEMA [None]
  - HEADACHE [None]
  - STOMACH DISCOMFORT [None]
  - VISION BLURRED [None]
